FAERS Safety Report 6023396-6 (Version None)
Quarter: 2008Q4

REPORT INFORMATION
  Report Type: 
  Country: None (occurrence: None)
  Receive Date: 20081222
  Receipt Date: 20081117
  Transmission Date: 20090506
  Serious: No
  Sender: FDA-Public Use
  Company Number: ALL1-2008-03353

PATIENT
  Age: 7 Year
  Sex: Male
  Weight: 33.6 kg

DRUGS (8)
  1. VYVANSE [Suspect]
     Indication: ATTENTION DEFICIT/HYPERACTIVITY DISORDER
     Dosage: 20 MG, 1X/DAY:QD, ORAL ; 30 MG, 1X/DAY:QD, ORAL
     Route: 048
     Dates: start: 20081001, end: 20081116
  2. VYVANSE [Suspect]
     Indication: ATTENTION DEFICIT/HYPERACTIVITY DISORDER
     Dosage: 20 MG, 1X/DAY:QD, ORAL ; 30 MG, 1X/DAY:QD, ORAL
     Route: 048
     Dates: start: 20081117
  3. SINGULAIR /01362601/ (MONTELUKAST) [Concomitant]
  4. ZYRTEC [Concomitant]
  5. QVAR [Concomitant]
  6. PROVENTIL /00139501/ (SALBUTAMOL) [Concomitant]
  7. MOTRIN [Concomitant]
  8. RHINOCORT /00212602/ (BECLOMETASONE DIPROPIONATE) [Concomitant]

REACTIONS (4)
  - ANOREXIA [None]
  - CHEST DISCOMFORT [None]
  - FEELING ABNORMAL [None]
  - NAUSEA [None]
